FAERS Safety Report 8916949 (Version 1)
Quarter: 2012Q4

REPORT INFORMATION
  Report Type: 
  Country: NZ (occurrence: NZ)
  Receive Date: 20121120
  Receipt Date: 20121120
  Transmission Date: 20130627
  Serious: Yes (Disabling, Other)
  Sender: FDA-Public Use
  Company Number: NZ-009507513-1210NZL014051

PATIENT
  Age: 70 Year
  Sex: Female

DRUGS (2)
  1. OVESTIN [Suspect]
     Indication: HORMONE REPLACEMENT THERAPY
     Dosage: 500 MICROGRAM/ DAILY AND THEN TWICE  WEEKELY
     Route: 067
     Dates: start: 201210, end: 2012
  2. OVESTIN [Suspect]
     Dosage: UNK
     Dates: start: 2012

REACTIONS (1)
  - Burning sensation [Recovered/Resolved]
